FAERS Safety Report 17207780 (Version 11)
Quarter: 2024Q2

REPORT INFORMATION
  Report Type: Spontaneous
  Country: US (occurrence: US)
  Receive Date: 20191227
  Receipt Date: 20240411
  Transmission Date: 20240715
  Serious: Yes (Hospitalization)
  Sender: FDA-Public Use
  Company Number: US-VERTEX PHARMACEUTICALS-2019-013229

PATIENT
  Age: 35 Year
  Sex: Female
  Weight: 68 kg

DRUGS (18)
  1. TRIKAFTA [Suspect]
     Active Substance: ELEXACAFTOR\IVACAFTOR\TEZACAFTOR
     Indication: Cystic fibrosis
     Dosage: REDUCED DOSAGE (MORNING DOSE ON MON AND THURS)
     Route: 048
     Dates: start: 20191205
  2. TRIKAFTA [Suspect]
     Active Substance: ELEXACAFTOR\IVACAFTOR\TEZACAFTOR
     Dosage: FULL DOSE, 2 ORANGE TABS OF 100MG ELEXA/ 50 MG TEZA/ 75 MG IVA AM; 1 BLUE TAB 150 MG IVA PM
     Route: 048
  3. TRIKAFTA [Suspect]
     Active Substance: ELEXACAFTOR\IVACAFTOR\TEZACAFTOR
     Dosage: 2 ORANGE PILLS IN AM; NO BLUE PILL
     Route: 048
  4. INVEGA [Suspect]
     Active Substance: PALIPERIDONE
     Indication: Mental disorder
     Dosage: 6 MG
     Route: 065
  5. INVEGA [Suspect]
     Active Substance: PALIPERIDONE
     Dosage: 3 MG
     Route: 065
  6. WELLBUTRIN [Concomitant]
     Active Substance: BUPROPION HYDROCHLORIDE
  7. ZYVOX [Concomitant]
     Active Substance: LINEZOLID
  8. MIRTAZAPINE [Concomitant]
     Active Substance: MIRTAZAPINE
  9. AZITHROMYCIN [Concomitant]
     Active Substance: AZITHROMYCIN
     Dosage: UNK
  10. CAYSTON [Concomitant]
     Active Substance: AZTREONAM
     Dosage: UNK
  11. NEXIUM [Concomitant]
     Active Substance: ESOMEPRAZOLE MAGNESIUM
     Dosage: UNK
  12. KITABIS PAK [Concomitant]
     Active Substance: TOBRAMYCIN
     Dosage: UNK
  13. PROVENTIL [Concomitant]
     Active Substance: ALBUTEROL
     Dosage: UNK
  14. PULMOZYME [Concomitant]
     Active Substance: DORNASE ALFA
     Dosage: UNK
  15. KETOCONAZOLE [Concomitant]
     Active Substance: KETOCONAZOLE
  16. TOBI [Concomitant]
     Active Substance: TOBRAMYCIN
  17. ALBUTEROL [Concomitant]
     Active Substance: ALBUTEROL
  18. UBRELVY [Concomitant]
     Active Substance: UBROGEPANT
     Indication: Migraine
     Dosage: UNK

REACTIONS (13)
  - Paranasal sinus hypersecretion [Not Recovered/Not Resolved]
  - Increased appetite [Not Recovered/Not Resolved]
  - Headache [Not Recovered/Not Resolved]
  - Infective pulmonary exacerbation of cystic fibrosis [Unknown]
  - Pneumonia bacterial [Unknown]
  - COVID-19 [Unknown]
  - Muscle twitching [Not Recovered/Not Resolved]
  - Asthma [Recovered/Resolved]
  - Hypothyroidism [Not Recovered/Not Resolved]
  - Weight increased [Recovering/Resolving]
  - Constipation [Recovered/Resolved]
  - Fatigue [Unknown]
  - Alopecia [Unknown]

NARRATIVE: CASE EVENT DATE: 20191201
